FAERS Safety Report 7739404-8 (Version None)
Quarter: 2011Q3

REPORT INFORMATION
  Report Type: 
  Country: None (occurrence: None)
  Receive Date: 20110909
  Receipt Date: 20110901
  Transmission Date: 20111222
  Serious: Yes (Other)
  Sender: FDA-Public Use
  Company Number: US-RANBAXY-2011US-47435

PATIENT

DRUGS (1)
  1. LORATADINE [Suspect]
     Indication: PRODUCT USED FOR UNKNOWN INDICATION
     Dosage: 10 MG, UNK
     Route: 048

REACTIONS (4)
  - DIARRHOEA [None]
  - ECZEMA [None]
  - FEEDING DISORDER OF INFANCY OR EARLY CHILDHOOD [None]
  - EXPOSURE DURING BREAST FEEDING [None]
